FAERS Safety Report 7706641-8 (Version None)
Quarter: 2011Q3

REPORT INFORMATION
  Report Type: 
  Country: None (occurrence: None)
  Receive Date: 20110824
  Receipt Date: 20110816
  Transmission Date: 20111222
  Serious: Yes (Other)
  Sender: FDA-Public Use
  Company Number: BE-JNJFOC-20110600599

PATIENT

DRUGS (4)
  1. DOXORUBICIN HYDROCHLORIDE [Suspect]
     Route: 042
  2. CISPLATIN [Suspect]
     Indication: SALIVARY GLAND NEOPLASM
     Route: 065
  3. CYCLOPHOSPHAMIDE [Suspect]
     Indication: SALIVARY GLAND NEOPLASM
     Route: 065
  4. DOXORUBICIN HYDROCHLORIDE [Suspect]
     Indication: SALIVARY GLAND NEOPLASM
     Route: 042

REACTIONS (2)
  - ACUTE MYOCARDIAL INFARCTION [None]
  - ANAEMIA [None]
